FAERS Safety Report 5787980-7 (Version None)
Quarter: 2008Q2

REPORT INFORMATION
  Report Type: 
  Country: None (occurrence: None)
  Receive Date: 20080625
  Receipt Date: 20080617
  Transmission Date: 20081010
  Serious: Yes (Hospitalization)
  Sender: FDA-Public Use
  Company Number: US-ASTRAZENECA-2008UW11809

PATIENT
  Age: 40 Year
  Sex: Female

DRUGS (3)
  1. CRESTOR [Suspect]
     Route: 048
     Dates: start: 20080401, end: 20080101
  2. DIURETIC [Suspect]
     Dates: end: 20080101
  3. METHAMPHETAMINE HYDROCHLORIDE [Suspect]

REACTIONS (2)
  - RESPIRATORY FAILURE [None]
  - RHABDOMYOLYSIS [None]
